FAERS Safety Report 8476606-X (Version None)
Quarter: 2012Q2

REPORT INFORMATION
  Report Type: 
  Country: None (occurrence: None)
  Receive Date: 20120628
  Receipt Date: 20120618
  Transmission Date: 20120825
  Serious: Yes (Death, Hospitalization)
  Sender: FDA-Public Use
  Company Number: JP-TEVA-344271ISR

PATIENT
  Age: 29 Year
  Sex: Female

DRUGS (2)
  1. ACETAMINOPHEN [Suspect]
     Indication: COUGH
     Route: 065
  2. ACETAMINOPHEN [Suspect]
     Indication: PYREXIA
     Route: 065

REACTIONS (8)
  - STEVENS-JOHNSON SYNDROME [None]
  - BRONCHITIS CHRONIC [None]
  - ANTIBIOTIC RESISTANT STAPHYLOCOCCUS TEST [None]
  - CARDIAC FAILURE [None]
  - PNEUMOTHORAX [None]
  - HYPERCAPNIA [None]
  - RESPIRATORY FAILURE [None]
  - PNEUMOMEDIASTINUM [None]
